FAERS Safety Report 7501772-X (Version None)
Quarter: 2011Q2

REPORT INFORMATION
  Report Type: 
  Country: None (occurrence: None)
  Receive Date: 20110523
  Receipt Date: 20110523
  Transmission Date: 20111010
  Serious: Yes (Hospitalization)
  Sender: FDA-Public Use
  Company Number: None

PATIENT
  Age: 50 Year
  Sex: Male
  Weight: 90.8 kg

DRUGS (6)
  1. SPIRONOLACTONE [Concomitant]
  2. TIROSYN [Suspect]
     Indication: ARRHYTHMIA
     Dosage: 500MCG Q/2HR PO RECENT
     Route: 048
  3. METOPROLOL TARTRATE [Concomitant]
  4. RAMIPRIL [Concomitant]
  5. AMIODARONE HCL [Concomitant]
  6. WARFARIN SODIUM [Concomitant]

REACTIONS (1)
  - VENTRICULAR FIBRILLATION [None]
